FAERS Safety Report 20463064 (Version 3)
Quarter: 2023Q1

REPORT INFORMATION
  Report Type: Spontaneous
  Country: US (occurrence: US)
  Receive Date: 20220211
  Receipt Date: 20230210
  Transmission Date: 20230417
  Serious: Yes (Hospitalization)
  Sender: FDA-Public Use
  Company Number: US-SA-SAC20220207001512

PATIENT
  Age: 61 Year
  Sex: Female

DRUGS (2)
  1. FABRAZYME [Suspect]
     Active Substance: AGALSIDASE BETA
     Indication: Fabry^s disease
     Dosage: 80 MG (STRENGTH 35 MG AT DOSE OF 70 MG AND STRENGTH 5 MG AT DOSE OF 10 MG), QOW
     Route: 042
     Dates: start: 201908, end: 202201
  2. FABRAZYME [Suspect]
     Active Substance: AGALSIDASE BETA
     Dosage: 80 MG (STRENGTH 35 MG AT DOSE OF 70 MG AND STRENGTH 5 MG AT DOSE OF 10 MG), QOW
     Route: 042
     Dates: start: 202202

REACTIONS (3)
  - Gallbladder operation [Unknown]
  - Weight decreased [Unknown]
  - Fall [Unknown]

NARRATIVE: CASE EVENT DATE: 20220101
